FAERS Safety Report 9419461 (Version 1)
Quarter: 2013Q3

REPORT INFORMATION
  Report Type: Spontaneous
  Country: US (occurrence: US)
  Receive Date: 20130725
  Receipt Date: 20130725
  Transmission Date: 20140515
  Serious: Yes (Hospitalization, Other)
  Sender: FDA-Public Use
  Company Number: US-PFIZER INC-2013214870

PATIENT
  Age: 57 Year
  Sex: Female

DRUGS (16)
  1. FLUOXETINE HCL [Suspect]
     Dosage: 40 MG, 1X/DAY
     Route: 065
  2. TRAMADOL HCL [Suspect]
     Dosage: UNK
     Route: 065
  3. DOXEPIN HCL [Suspect]
     Dosage: UNK
     Route: 065
  4. MILNACIPRAN [Suspect]
     Indication: FIBROMYALGIA
     Dosage: 12.5 MG ONCE ON DAY 1
     Route: 065
  5. MILNACIPRAN [Suspect]
     Dosage: 12.5 MG TWICE DAILY ON DAYS 2-3
     Route: 065
  6. MILNACIPRAN [Suspect]
     Dosage: 25 MG TWICE DAILY ON DAYS 4-7
     Route: 065
  7. MILNACIPRAN [Suspect]
     Dosage: 50 MG TWICE DAILY THEREAFTER
     Route: 065
  8. ALPRAZOLAM [Concomitant]
     Dosage: UNK
  9. ZOLPIDEM [Concomitant]
     Dosage: UNK
  10. ZOLEDRONIC ACID [Concomitant]
     Dosage: UNK
  11. ANASTROZOLE [Concomitant]
     Dosage: UNK
  12. RANITIDINE [Concomitant]
     Dosage: UNK
  13. LEVOCETIRIZINE [Concomitant]
     Dosage: UNK
  14. DOXAZOSIN [Concomitant]
  15. VITAMIN D [Concomitant]
  16. FERROUS GLUCONATE [Concomitant]
     Dosage: UNK

REACTIONS (14)
  - Serotonin syndrome [Recovered/Resolved]
  - Rash morbilliform [Recovered/Resolved]
  - Rash maculo-papular [Recovered/Resolved]
  - Rash erythematous [Recovered/Resolved]
  - Diarrhoea [Recovered/Resolved]
  - Nausea [Recovered/Resolved]
  - Restlessness [Recovered/Resolved]
  - Dizziness [Recovered/Resolved]
  - Myalgia [Recovered/Resolved]
  - Pyrexia [Recovered/Resolved]
  - Body temperature increased [Recovered/Resolved]
  - Blood pressure increased [Recovered/Resolved]
  - Heart rate increased [Recovered/Resolved]
  - Pruritus [Recovered/Resolved]
